FAERS Safety Report 16767658 (Version 1)
Quarter: 2019Q4

REPORT INFORMATION
  Report Type: Spontaneous
  Country: US (occurrence: US)
  Receive Date: 20190903
  Receipt Date: 20190903
  Transmission Date: 20200122
  Serious: Yes (Other)
  Sender: FDA-Public Use
  Company Number: None

PATIENT
  Sex: Male

DRUGS (3)
  1. AUBAGIO [Concomitant]
     Active Substance: TERIFLUNOMIDE
     Dates: start: 20190903
  2. GLATIRAMER [Suspect]
     Active Substance: GLATIRAMER
     Dosage: ?          OTHER FREQUENCY:EVERY MON,WED,FRI;?
     Route: 058
     Dates: start: 20190523
  3. LEVETIRACETAM 250MG [Concomitant]
     Active Substance: LEVETIRACETAM
     Dates: start: 20190411

REACTIONS (4)
  - Injection site pain [None]
  - Injection site paraesthesia [None]
  - Injection site mass [None]
  - Seizure [None]
